FAERS Safety Report 23961867 (Version 1)
Quarter: 2024Q2

REPORT INFORMATION
  Report Type: Spontaneous
  Country: BR (occurrence: BR)
  Receive Date: 20240611
  Receipt Date: 20240611
  Transmission Date: 20240716
  Serious: Yes (Other)
  Sender: FDA-Public Use
  Company Number: BR-Merck Healthcare KGaA-2024030768

PATIENT
  Sex: Female

DRUGS (6)
  1. METFORMIN HYDROCHLORIDE [Suspect]
     Active Substance: METFORMIN HYDROCHLORIDE
     Indication: Type 2 diabetes mellitus
     Dosage: 1 TABLET AFTER LUNCH AND 1 TABLET AFTER DINNER?START DATE: ABOUT 17 YEARS
     Route: 048
     Dates: start: 20070601
  2. AMLODIPINE [Concomitant]
     Active Substance: AMLODIPINE BESYLATE
     Indication: Arrhythmia
     Dosage: MORE THAN 17 YEARS AGO
  3. SIMVASTATIN [Concomitant]
     Active Substance: SIMVASTATIN
     Indication: Hypercholesterolaemia
     Dosage: SIMVASTATIN 40 (UNSPECIFIED)?START DATE: 18 YEARS
  4. LOSARTAN [Concomitant]
     Active Substance: LOSARTAN
     Indication: Hypertension
  5. XARELTO [Concomitant]
     Active Substance: RIVAROXABAN
     Indication: Thrombosis prophylaxis
  6. DIOSMIN [Concomitant]
     Active Substance: DIOSMIN
     Indication: Cerebrovascular disorder
     Dosage: 450 PLUS 50MG

REACTIONS (2)
  - Thrombosis [Not Recovered/Not Resolved]
  - Vasculitis [Not Recovered/Not Resolved]
